FAERS Safety Report 10842300 (Version 1)
Quarter: 2015Q1

REPORT INFORMATION
  Report Type: Spontaneous
  Country: US (occurrence: US)
  Receive Date: 20150220
  Receipt Date: 20150220
  Transmission Date: 20150721
  Serious: No
  Sender: FDA-Public Use
  Company Number: US-PFIZER INC-2015060317

PATIENT
  Age: 78 Year
  Sex: Female
  Weight: 58 kg

DRUGS (1)
  1. ADVIL [Suspect]
     Active Substance: IBUPROFEN
     Indication: PROCEDURAL PAIN
     Dosage: 8 DF, DAILY (256 MG)

REACTIONS (5)
  - Drug ineffective [Unknown]
  - Hypertension [Unknown]
  - Body height decreased [Unknown]
  - Reaction to drug excipients [Unknown]
  - Intentional product misuse [Unknown]
